FAERS Safety Report 6297893-2 (Version None)
Quarter: 2009Q3

REPORT INFORMATION
  Report Type: 
  Country: None (occurrence: None)
  Receive Date: 20090804
  Receipt Date: 20090804
  Transmission Date: 20100115
  Serious: Yes (Hospitalization, Other)
  Sender: FDA-Public Use
  Company Number: None

PATIENT
  Sex: Male
  Weight: 74.8435 kg

DRUGS (1)
  1. NUVIGIL [Suspect]
     Indication: HYPERVIGILANCE
     Dosage: 150 MG, ONCE EVERY MORNING, PO
     Route: 048
     Dates: start: 20090724, end: 20090729

REACTIONS (4)
  - DYSARTHRIA [None]
  - FEELING DRUNK [None]
  - MEMORY IMPAIRMENT [None]
  - NO THERAPEUTIC RESPONSE [None]
